FAERS Safety Report 23508151 (Version 2)
Quarter: 2024Q1

REPORT INFORMATION
  Report Type: Report from Study
  Country: AE (occurrence: AE)
  Receive Date: 20240209
  Receipt Date: 20240219
  Transmission Date: 20240409
  Serious: Yes (Hospitalization, Other)
  Sender: FDA-Public Use
  Company Number: AE-SANDOZ-SDZ2024AE012979

PATIENT
  Age: 34 Year
  Sex: Male

DRUGS (1)
  1. HYRIMOZ [Suspect]
     Active Substance: ADALIMUMAB-ADAZ
     Indication: Colitis ulcerative
     Dosage: 40 MG ONCE EVERY TWO WEEKS
     Route: 058

REACTIONS (4)
  - Cytomegalovirus colitis [Not Recovered/Not Resolved]
  - Sepsis [Not Recovered/Not Resolved]
  - Treatment noncompliance [Recovered/Resolved]
  - Inappropriate schedule of product administration [Not Recovered/Not Resolved]

NARRATIVE: CASE EVENT DATE: 20231201
